FAERS Safety Report 6768261-1 (Version None)
Quarter: 2010Q2

REPORT INFORMATION
  Report Type: 
  Country: None (occurrence: None)
  Receive Date: 20100614
  Receipt Date: 20100607
  Transmission Date: 20101027
  Serious: Yes (Death, Hospitalization)
  Sender: FDA-Public Use
  Company Number: US-GENENTECH-300618

PATIENT
  Sex: Female

DRUGS (4)
  1. RITUXAN [Suspect]
     Indication: NON-HODGKIN'S LYMPHOMA
     Dosage: UNK
     Dates: start: 20091001
  2. RITUXAN [Suspect]
     Dosage: UNK
     Route: 042
     Dates: start: 20100305
  3. NAMENDA [Concomitant]
     Indication: DRUG USE FOR UNKNOWN INDICATION
  4. ARICEPT [Concomitant]
     Indication: DRUG USE FOR UNKNOWN INDICATION

REACTIONS (3)
  - DEATH [None]
  - NEUTROPENIA [None]
  - PYREXIA [None]
